FAERS Safety Report 23155599 (Version 2)
Quarter: 2025Q2

REPORT INFORMATION
  Report Type: Spontaneous
  Country: US (occurrence: US)
  Receive Date: 20231107
  Receipt Date: 20250510
  Transmission Date: 20250717
  Serious: No
  Sender: SANOFI AVENTIS
  Company Number: US-SA-SAC20231030000716

PATIENT
  Sex: Male

DRUGS (18)
  1. DUPIXENT [Suspect]
     Active Substance: DUPILUMAB
     Indication: Asthma
     Dosage: 300 MG, QOW
     Route: 058
     Dates: start: 20220513
  2. DUPIXENT [Suspect]
     Active Substance: DUPILUMAB
     Indication: Asthma
     Dosage: 300 MG, QOW
     Route: 058
  3. ADVAIR HFA [Concomitant]
     Active Substance: FLUTICASONE PROPIONATE\SALMETEROL XINAFOATE
  4. ALBUTEROL SULFATE [Concomitant]
     Active Substance: ALBUTEROL SULFATE
  5. AMLODIPINE [Concomitant]
     Active Substance: AMLODIPINE BESYLATE
  6. ANUCORT-HC [Concomitant]
     Active Substance: HYDROCORTISONE ACETATE
  7. ARNUITY ELLIPTA [Concomitant]
     Active Substance: FLUTICASONE FUROATE
  8. INH [Concomitant]
     Active Substance: ISONIAZID
  9. CLOBETASOL [Concomitant]
     Active Substance: CLOBETASOL
  10. DIAZEPAM [Concomitant]
     Active Substance: DIAZEPAM
  11. DIAZEPAM [Concomitant]
     Active Substance: DIAZEPAM
  12. DIAZEPAM [Concomitant]
     Active Substance: DIAZEPAM
  13. FLUTICASONE PROPIONATE\SALMETEROL XINAFOATE [Concomitant]
     Active Substance: FLUTICASONE PROPIONATE\SALMETEROL XINAFOATE
  14. IBUPROFEN [Concomitant]
     Active Substance: IBUPROFEN
  15. LISINOPRIL [Concomitant]
     Active Substance: LISINOPRIL
  16. MONTELUKAST [Concomitant]
     Active Substance: MONTELUKAST
  17. PREDNISONE [Concomitant]
     Active Substance: PREDNISONE
  18. TIZANIDINE [Concomitant]
     Active Substance: TIZANIDINE

REACTIONS (2)
  - Impaired quality of life [Unknown]
  - Asthma [Unknown]
